FAERS Safety Report 10983435 (Version 1)
Quarter: 2015Q2

REPORT INFORMATION
  Report Type: Report from Study
  Country: US (occurrence: US)
  Receive Date: 20150403
  Receipt Date: 20150403
  Transmission Date: 20150821
  Serious: Yes (Other)
  Sender: FDA-Public Use
  Company Number: US-JNJFOC-20150323204

PATIENT
  Sex: Male
  Weight: 75.75 kg

DRUGS (1)
  1. REMICADE [Suspect]
     Active Substance: INFLIXIMAB
     Indication: CROHN^S DISEASE
     Dosage: ONCE EVRY ^12 WEEKS^
     Route: 042

REACTIONS (2)
  - Skin cancer [Unknown]
  - Ear neoplasm malignant [Recovering/Resolving]

NARRATIVE: CASE EVENT DATE: 2009
